FAERS Safety Report 11183704 (Version 1)
Quarter: 2015Q2

REPORT INFORMATION
  Report Type: Spontaneous
  Country: US (occurrence: None)
  Receive Date: 20150611
  Receipt Date: 20150611
  Transmission Date: 20150821
  Serious: Yes (Hospitalization)
  Sender: FDA-Public Use
  Company Number: None

PATIENT
  Age: 53 Year
  Sex: Male
  Weight: 165.5 kg

DRUGS (8)
  1. SPIRONOLACTONE. [Concomitant]
     Active Substance: SPIRONOLACTONE
  2. FUROSEMIDE. [Concomitant]
     Active Substance: FUROSEMIDE
  3. HARVONI [Suspect]
     Active Substance: LEDIPASVIR\SOFOSBUVIR
     Indication: HEPATITIS C
     Route: 048
     Dates: start: 20141125, end: 20150513
  4. RIFAXIMIN [Concomitant]
     Active Substance: RIFAXIMIN
  5. LACTULOSE. [Concomitant]
     Active Substance: LACTULOSE
  6. LASIX [Concomitant]
     Active Substance: FUROSEMIDE
  7. PROTONIX [Concomitant]
     Active Substance: PANTOPRAZOLE SODIUM
  8. OMEPRAZOLE. [Concomitant]
     Active Substance: OMEPRAZOLE

REACTIONS (2)
  - Fall [None]
  - Hepatic encephalopathy [None]

NARRATIVE: CASE EVENT DATE: 20150312
